FAERS Safety Report 10641838 (Version 3)
Quarter: 2015Q3

REPORT INFORMATION
  Report Type: Spontaneous
  Country: US (occurrence: US)
  Receive Date: 20141209
  Receipt Date: 20150818
  Transmission Date: 20151125
  Serious: No
  Sender: FDA-Public Use
  Company Number: US-GILEAD-2014-0125676

PATIENT
  Age: 66 Year
  Sex: Female

DRUGS (1)
  1. LETAIRIS [Suspect]
     Active Substance: AMBRISENTAN
     Indication: PRODUCT USED FOR UNKNOWN INDICATION
     Dosage: 5 MG, QD
     Route: 065
     Dates: start: 20141113

REACTIONS (6)
  - Fatigue [Unknown]
  - Dysphonia [Unknown]
  - Appetite disorder [Unknown]
  - Anxiety [Unknown]
  - Sleep disorder [Unknown]
  - Dry mouth [Unknown]
